FAERS Safety Report 13758320 (Version 1)
Quarter: 2017Q3

REPORT INFORMATION
  Report Type: Spontaneous
  Country: US (occurrence: US)
  Receive Date: 20170717
  Receipt Date: 20170717
  Transmission Date: 20171127
  Serious: No
  Sender: FDA-Public Use
  Company Number: US-PFIZER INC-2017309171

PATIENT
  Sex: Female

DRUGS (4)
  1. MEDROL [Suspect]
     Active Substance: METHYLPREDNISOLONE
     Dosage: 12 MG, 1X/DAY (7 DAYS)
     Route: 048
  2. MEDROL [Suspect]
     Active Substance: METHYLPREDNISOLONE
     Dosage: 8 MG, 1X/DAY (7 DAYS)
     Route: 048
  3. MEDROL [Suspect]
     Active Substance: METHYLPREDNISOLONE
     Indication: ARTHRALGIA
     Dosage: 16 MG, 1X/DAY (14 DAYS)
     Route: 048
  4. MEDROL [Suspect]
     Active Substance: METHYLPREDNISOLONE
     Dosage: 4 MG, 2X/DAY

REACTIONS (3)
  - Weight increased [Unknown]
  - Fatigue [Unknown]
  - Malaise [Unknown]
